FAERS Safety Report 4319109-6 (Version None)
Quarter: 2004Q1

REPORT INFORMATION
  Report Type: 
  Country: None (occurrence: None)
  Receive Date: 20040318
  Receipt Date: 20040318
  Transmission Date: 20041129
  Serious: Yes (Life-Threatening)
  Sender: FDA-Public Use
  Company Number: None

PATIENT
  Sex: Female

DRUGS (2)
  1. TERBUTALINE PUMP MATRIA [Suspect]
     Indication: UTERINE CONTRACTIONS DURING PREGNANCY
     Dosage: VARIED SUBCUTANEOUS
     Route: 058
     Dates: start: 20030823, end: 20030905
  2. PRENATAL VITAMINS [Concomitant]

REACTIONS (2)
  - ARRHYTHMIA [None]
  - TACHYCARDIA [None]
